FAERS Safety Report 22160663 (Version 2)
Quarter: 2023Q2

REPORT INFORMATION
  Report Type: Report from Study
  Country: US (occurrence: US)
  Receive Date: 20230331
  Receipt Date: 20230605
  Transmission Date: 20230721
  Serious: No
  Sender: FDA-Public Use
  Company Number: US-ABBVIE-4300683

PATIENT
  Age: 34 Year
  Sex: Female

DRUGS (1)
  1. HUMIRA [Suspect]
     Active Substance: ADALIMUMAB
     Indication: Ankylosing spondylitis
     Route: 058
     Dates: start: 20230109

REACTIONS (8)
  - Injection site reaction [Recovered/Resolved]
  - Injection site pruritus [Not Recovered/Not Resolved]
  - Injection site erythema [Not Recovered/Not Resolved]
  - Injection site pain [Unknown]
  - Injection site papule [Not Recovered/Not Resolved]
  - Ankylosing spondylitis [Unknown]
  - Photosensitivity reaction [Unknown]
  - Migraine [Recovered/Resolved]

NARRATIVE: CASE EVENT DATE: 20230109
